FAERS Safety Report 8985240 (Version 2)
Quarter: 2013Q1

REPORT INFORMATION
  Report Type: Spontaneous
  Country: US (occurrence: US)
  Receive Date: 20121226
  Receipt Date: 20130107
  Transmission Date: 20140127
  Serious: Yes (Other)
  Sender: FDA-Public Use
  Company Number: US-AMGEN-USASP2012082320

PATIENT
  Age: 62 Year
  Sex: Female

DRUGS (1)
  1. ENBREL [Suspect]
     Indication: RHEUMATOID ARTHRITIS
     Dosage: 50 MG, QWK
     Dates: start: 20090818

REACTIONS (4)
  - Lumbar vertebral fracture [Recovered/Resolved]
  - Sciatica [Not Recovered/Not Resolved]
  - Fall [Unknown]
  - Paraesthesia [Not Recovered/Not Resolved]
